FAERS Safety Report 4349992-X (Version None)
Quarter: 2004Q2

REPORT INFORMATION
  Report Type: 
  Country: None (occurrence: None)
  Receive Date: 20040426
  Receipt Date: 20040408
  Transmission Date: 20050107
  Serious: Yes (Death, Hospitalization)
  Sender: FDA-Public Use
  Company Number: US-SHR-04-020322

PATIENT
  Age: 66 Year
  Sex: Male

DRUGS (8)
  1. BETASERON [Suspect]
     Indication: MULTIPLE SCLEROSIS
     Dosage: SEE IMAGE
     Route: 058
     Dates: start: 20000101, end: 20040101
  2. BETASERON [Suspect]
     Indication: MULTIPLE SCLEROSIS
     Dosage: SEE IMAGE
     Route: 058
     Dates: start: 19940101
  3. BACLOFEN [Concomitant]
  4. VALIUM [Concomitant]
  5. NEURONTIN [Concomitant]
  6. ALPHAGAN [Concomitant]
  7. LUMIGAN [Concomitant]
  8. ADVIL [Concomitant]

REACTIONS (14)
  - ACUTE MYOCARDIAL INFARCTION [None]
  - ANAEMIA [None]
  - ASPIRATION [None]
  - ASTHENIA [None]
  - ATRIOVENTRICULAR BLOCK [None]
  - CARDIOGENIC SHOCK [None]
  - CARDIOMYOPATHY [None]
  - DRUG DEPENDENCE [None]
  - FAECES DISCOLOURED [None]
  - GASTROINTESTINAL HAEMORRHAGE [None]
  - HYPOXIA [None]
  - MUSCLE SPASMS [None]
  - PAIN [None]
  - PNEUMONIA [None]
